FAERS Safety Report 24334755 (Version 1)
Quarter: 2024Q3

REPORT INFORMATION
  Report Type: Report from Study
  Country: FR (occurrence: FR)
  Receive Date: 20240918
  Receipt Date: 20240918
  Transmission Date: 20241017
  Serious: Yes (Other)
  Sender: IPSEN
  Company Number: FR-IPSEN Group, Research and Development-2024-18183

PATIENT
  Age: 10 Year
  Sex: Male
  Weight: 25 kg

DRUGS (12)
  1. INCRELEX [Suspect]
     Active Substance: MECASERMIN
     Indication: Severe primary insulin like growth factor-1 deficiency
     Dosage: 0.04 (MG/KG) BID
     Route: 065
     Dates: start: 20230606, end: 20230613
  2. INCRELEX [Suspect]
     Active Substance: MECASERMIN
     Dosage: 0.08 (MG/KG) BID
     Route: 065
     Dates: start: 20230614, end: 20230620
  3. INCRELEX [Suspect]
     Active Substance: MECASERMIN
     Dosage: 0.12 (MG/KG) BID
     Route: 065
     Dates: start: 20230621, end: 202307
  4. INCRELEX [Suspect]
     Active Substance: MECASERMIN
     Dosage: 0.04 (MG/KG) BID
     Route: 065
     Dates: start: 20230912, end: 20230919
  5. INCRELEX [Suspect]
     Active Substance: MECASERMIN
     Dosage: 0.08 (MG/KG) BID
     Route: 065
     Dates: start: 20230920, end: 20230927
  6. INCRELEX [Suspect]
     Active Substance: MECASERMIN
     Dosage: 0.12 (MG/KG) BID
     Route: 065
     Dates: start: 20230928, end: 202401
  7. INCRELEX [Suspect]
     Active Substance: MECASERMIN
     Dosage: 0.04 (MG/KG) BID
     Route: 065
     Dates: start: 20240619, end: 20240626
  8. INCRELEX [Suspect]
     Active Substance: MECASERMIN
     Dosage: 0.08 (MG/KG) BID
     Route: 065
     Dates: start: 20240627, end: 20240718
  9. INCRELEX [Suspect]
     Active Substance: MECASERMIN
     Dosage: 0.12 (MG/KG) BID
     Route: 065
     Dates: start: 20240719, end: 20240828
  10. INCRELEX [Suspect]
     Active Substance: MECASERMIN
     Dosage: 0.08 (MG/KG) BID
     Route: 065
     Dates: start: 20240829
  11. CALCIUM PHOSPHATE, DIBASIC, ANHYDROUS\MAGNESIUM GLYCEROPHOSPHATE\PHOSP [Concomitant]
     Active Substance: CALCIUM PHOSPHATE, DIBASIC, ANHYDROUS\MAGNESIUM GLYCEROPHOSPHATE\PHOSPHORIC ACID\SODIUM PHOSPHATE, D
  12. ALFACALCIDOL [Concomitant]
     Active Substance: ALFACALCIDOL

REACTIONS (3)
  - Papilloedema [Recovered/Resolved]
  - Papilloedema [Not Recovered/Not Resolved]
  - Hypoglycaemia [Recovered/Resolved]

NARRATIVE: CASE EVENT DATE: 20230701
